FAERS Safety Report 7744520-0 (Version None)
Quarter: 2011Q3

REPORT INFORMATION
  Report Type: 
  Country: None (occurrence: None)
  Receive Date: 20110912
  Receipt Date: 20110831
  Transmission Date: 20111222
  Serious: Yes (Hospitalization)
  Sender: FDA-Public Use
  Company Number: JP-SANOFI-AVENTIS-2011SA025974

PATIENT
  Age: 71 Year
  Sex: Male
  Weight: 52 kg

DRUGS (21)
  1. SIGMART [Concomitant]
     Route: 048
     Dates: start: 20100131
  2. IMIDAPRIL HYDROCHLORIDE [Concomitant]
     Indication: HYPERTENSION
     Route: 048
     Dates: start: 20100131
  3. ISOSORBIDE MONONITRATE [Concomitant]
     Indication: PROPHYLAXIS
     Route: 048
  4. HEPARIN [Concomitant]
     Dosage: DOSE:12000 UNIT(S)
     Route: 042
     Dates: start: 20100131, end: 20100201
  5. BISOPROLOL FUMARATE [Concomitant]
     Indication: HYPERTENSION
     Route: 048
  6. AMLODIPINE BESYLATE [Concomitant]
     Indication: HYPERTENSION
     Route: 048
  7. ASPIRIN [Concomitant]
     Route: 048
     Dates: start: 20100201
  8. ALL OTHER THERAPEUTIC PRODUCTS [Concomitant]
     Route: 048
     Dates: start: 20100201, end: 20100205
  9. PLAVIX [Suspect]
     Dosage: LOADING DOSE
     Route: 048
     Dates: start: 20100131, end: 20100131
  10. MIGLITOL [Concomitant]
     Indication: PROPHYLAXIS
     Route: 048
     Dates: start: 20100208
  11. AMARYL [Concomitant]
     Indication: DIABETES MELLITUS
     Route: 048
  12. ALLOPURINOL [Concomitant]
     Indication: HYPERURICAEMIA
     Route: 048
  13. HEPARIN [Concomitant]
     Dosage: DOSE:5000 UNIT(S)
     Route: 042
     Dates: start: 20100201, end: 20100201
  14. BASEN [Concomitant]
     Route: 048
     Dates: end: 20100208
  15. PLAVIX [Suspect]
     Route: 048
     Dates: start: 20100201
  16. ASPIRIN [Concomitant]
     Route: 048
     Dates: start: 20100131, end: 20100131
  17. AMPICILLIN SODIUM/SULBACTAM SODIUM [Concomitant]
     Indication: URINARY TRACT INFECTION
     Route: 048
     Dates: start: 20100201, end: 20100208
  18. RABEPRAZOLE SODIUM [Concomitant]
     Indication: PROPHYLAXIS
     Route: 048
  19. XYLOCAINE [Concomitant]
     Route: 042
     Dates: start: 20100201, end: 20100201
  20. ALOSENN [Concomitant]
     Indication: CONSTIPATION
     Route: 048
  21. ATORVASTATIN [Concomitant]
     Indication: DYSLIPIDAEMIA
     Route: 048

REACTIONS (1)
  - IN-STENT CORONARY ARTERY RESTENOSIS [None]
